FAERS Safety Report 8450927-9 (Version None)
Quarter: 2012Q2

REPORT INFORMATION
  Report Type: 
  Country: None (occurrence: None)
  Receive Date: 20120615
  Receipt Date: 20120615
  Transmission Date: 20120825
  Serious: No
  Sender: FDA-Public Use
  Company Number: None

PATIENT
  Sex: Female
  Weight: 96.8 kg

DRUGS (1)
  1. ENABLEX [Suspect]

REACTIONS (4)
  - OROPHARYNGEAL PAIN [None]
  - HYPERSENSITIVITY [None]
  - VISION BLURRED [None]
  - CONSTIPATION [None]
